FAERS Safety Report 7865167-1 (Version None)
Quarter: 2011Q4

REPORT INFORMATION
  Report Type: 
  Country: None (occurrence: None)
  Receive Date: 20111028
  Receipt Date: 20101025
  Transmission Date: 20120403
  Serious: No
  Sender: FDA-Public Use
  Company Number: US-GLAXOSMITHKLINE-A0888661A

PATIENT
  Age: 91 Year
  Sex: Female

DRUGS (9)
  1. NORVASC [Concomitant]
  2. CHLOROTHIAZIDE [Concomitant]
  3. SINGULAIR [Concomitant]
  4. SYNTHROID [Concomitant]
  5. VITAMIN-MINERAL COMPOUND TAB [Concomitant]
  6. SPIRONOLACTONE [Concomitant]
  7. OXYGEN [Concomitant]
  8. ADVAIR DISKUS 100/50 [Suspect]
     Indication: ASTHMA
     Dosage: 1PUFF TWICE PER DAY
     Route: 055
     Dates: start: 20071001
  9. KLOR-CON [Concomitant]

REACTIONS (1)
  - DYSPHONIA [None]
